FAERS Safety Report 11841236 (Version 2)
Quarter: 2015Q4

REPORT INFORMATION
  Report Type: Spontaneous
  Country: ES (occurrence: ES)
  Receive Date: 20151216
  Receipt Date: 20151223
  Transmission Date: 20160305
  Serious: Yes (Other)
  Sender: FDA-Public Use
  Company Number: PHHY2015ES163511

PATIENT
  Age: 12 Year
  Sex: Male

DRUGS (5)
  1. IMIQUIMOD. [Suspect]
     Active Substance: IMIQUIMOD
     Indication: POROKERATOSIS
     Dosage: 5 %, (THREE TIMES PER WEEK)
     Route: 065
  2. CICLOSPORIN [Suspect]
     Active Substance: CYCLOSPORINE
     Indication: BONE MARROW TRANSPLANT
     Dosage: UNK
     Route: 065
  3. CICLOSPORIN [Suspect]
     Active Substance: CYCLOSPORINE
     Indication: IMMUNOSUPPRESSANT DRUG THERAPY
  4. 5-FLUOROURACIL [Suspect]
     Active Substance: FLUOROURACIL
     Indication: POROKERATOSIS
     Route: 065
  5. CALCIPOTRIOL [Suspect]
     Active Substance: CALCIPOTRIENE
     Indication: POROKERATOSIS
     Route: 065

REACTIONS (6)
  - Pigmentation disorder [Recovered/Resolved]
  - Porokeratosis [Recovered/Resolved]
  - Hyperkeratosis [Recovered/Resolved]
  - Skin lesion [Recovered/Resolved]
  - Skin plaque [Recovered/Resolved]
  - Drug ineffective [Unknown]
